FAERS Safety Report 14149023 (Version 1)
Quarter: 2017Q4

REPORT INFORMATION
  Report Type: Report from Study
  Country: IN (occurrence: IN)
  Receive Date: 20171101
  Receipt Date: 20171101
  Transmission Date: 20180321
  Serious: Yes (Hospitalization)
  Sender: FDA-Public Use
  Company Number: PHHO2014IN007166

PATIENT
  Age: 45 Year
  Sex: Male
  Weight: 86 kg

DRUGS (8)
  1. ACZ885 [Suspect]
     Active Substance: CANAKINUMAB
     Indication: CARDIOVASCULAR EVENT PROPHYLAXIS
     Dosage: 50 MG, QUARTERLY
     Route: 058
     Dates: start: 20120425
  2. PAN D [Concomitant]
     Indication: GASTRITIS
     Dosage: 40 MG, QD
     Route: 048
     Dates: start: 20131025
  3. STORVAS [Concomitant]
     Indication: DYSLIPIDAEMIA
     Dosage: 20 MG, QD
     Route: 048
     Dates: start: 20130424
  4. LEVOFLOX [Concomitant]
     Active Substance: LEVOFLOXACIN
     Indication: ORCHITIS
     Dosage: 500 MG, QD
     Route: 048
     Dates: start: 20140510
  5. CLOPIVAX [Concomitant]
     Indication: MYOCARDIAL INFARCTION
     Dosage: 150 MG, UNK
     Route: 048
     Dates: start: 20120509
  6. CARDACE [Concomitant]
     Active Substance: RAMIPRIL
     Indication: HYPERTENSION
     Dosage: 5 MG, QD
     Route: 048
     Dates: start: 20131025
  7. NEBICARD [Concomitant]
     Active Substance: NEBIVOLOL HYDROCHLORIDE
     Indication: HYPERTENSION
     Dosage: 5 MG, QD
     Route: 048
     Dates: start: 20120413
  8. CLOPIVAX [Concomitant]
     Dosage: 75 MG, QD
     Route: 048
     Dates: start: 20140121

REACTIONS (1)
  - Scrotal abscess [Recovered/Resolved]

NARRATIVE: CASE EVENT DATE: 20140510
